FAERS Safety Report 11380955 (Version 3)
Quarter: 2015Q3

REPORT INFORMATION
  Report Type: Spontaneous
  Country: US (occurrence: US)
  Receive Date: 20150814
  Receipt Date: 20150819
  Transmission Date: 20151125
  Serious: Yes (Other)
  Sender: FDA-Public Use
  Company Number: US-RB-079549-15

PATIENT
  Age: 85 Year
  Sex: Male

DRUGS (2)
  1. MUCINEX SINUS-MAX SEVERE CONGESTION RELIEF [Suspect]
     Active Substance: ACETAMINOPHEN\GUAIFENESIN\PHENYLEPHRINE HYDROCHLORIDE
     Indication: SINUS CONGESTION
     Dosage: TOOK 1/4 OF THE TABLET 12 HOURS
     Route: 065
     Dates: start: 20150730
  2. MUCINEX SINUS-MAX SEVERE CONGESTION RELIEF [Suspect]
     Active Substance: ACETAMINOPHEN\GUAIFENESIN\PHENYLEPHRINE HYDROCHLORIDE
     Dosage: TOOK 1/4 OF THE TABLET 12 HOURS
     Route: 065
     Dates: start: 20150730

REACTIONS (3)
  - Anuria [Recovered/Resolved]
  - Wrong technique in product usage process [Recovered/Resolved]
  - Urine output decreased [Recovered/Resolved]

NARRATIVE: CASE EVENT DATE: 20150730
